FAERS Safety Report 9416112 (Version 2)
Quarter: 2014Q1

REPORT INFORMATION
  Report Type: Spontaneous
  Country: US (occurrence: US)
  Receive Date: 20130724
  Receipt Date: 20140123
  Transmission Date: 20141002
  Serious: No
  Sender: FDA-Public Use
  Company Number: US-B.I. PHARMACEUTICALS,INC./RIDGEFIELD-2013-BI-21344BP

PATIENT
  Age: 61 Year
  Sex: Female
  Weight: 49 kg

DRUGS (3)
  1. COMBIVENT [Suspect]
     Indication: CHRONIC OBSTRUCTIVE PULMONARY DISEASE
     Dosage: STRENGTH: 20 MCG / 100 MCG; DAILY DOSE:80 MCG/400
     Route: 055
     Dates: start: 20130701
  2. TRIPILX [Concomitant]
     Indication: BLOOD CHOLESTEROL INCREASED
     Dosage: 1 ANZ
     Route: 048
  3. TRAMEDOL [Concomitant]
     Indication: PAIN
     Route: 048
     Dates: start: 2011

REACTIONS (3)
  - Drug prescribing error [Not Recovered/Not Resolved]
  - Choking [Recovered/Resolved]
  - Wheezing [Not Recovered/Not Resolved]
